FAERS Safety Report 16655696 (Version 1)
Quarter: 2019Q3

REPORT INFORMATION
  Report Type: Spontaneous
  Country: CA (occurrence: CA)
  Receive Date: 20190801
  Receipt Date: 20190801
  Transmission Date: 20191004
  Serious: Yes (Hospitalization)
  Sender: FDA-Public Use
  Company Number: PHHY2019CA172057

PATIENT
  Age: 54 Year
  Sex: Female

DRUGS (3)
  1. RITUXIMAB. [Suspect]
     Active Substance: RITUXIMAB
     Indication: GLOMERULONEPHRITIS
     Route: 065
  2. CYCLOPHOSPHAMIDE. [Suspect]
     Active Substance: CYCLOPHOSPHAMIDE
     Indication: GLOMERULONEPHRITIS
     Route: 065
  3. PREDNISONE. [Suspect]
     Active Substance: PREDNISONE
     Indication: GLOMERULONEPHRITIS
     Route: 065

REACTIONS (12)
  - Candida infection [Recovering/Resolving]
  - Brain abscess [Recovered/Resolved]
  - Product use in unapproved indication [Unknown]
  - Bicytopenia [Recovering/Resolving]
  - Cerebral aspergillosis [Recovering/Resolving]
  - Microangiopathic haemolytic anaemia [Recovering/Resolving]
  - Generalised tonic-clonic seizure [Recovering/Resolving]
  - Delirium [Recovered/Resolved]
  - Schistocytosis [Recovering/Resolving]
  - Brain oedema [Recovering/Resolving]
  - Aspergillus infection [Recovering/Resolving]
  - Central nervous system lesion [Recovering/Resolving]
